FAERS Safety Report 16323372 (Version 2)
Quarter: 2019Q2

REPORT INFORMATION
  Report Type: Report from Study
  Country: JP (occurrence: JP)
  Receive Date: 20190517
  Receipt Date: 20190606
  Transmission Date: 20190711
  Serious: Yes (Hospitalization)
  Sender: FDA-Public Use
  Company Number: JP-AMGEN-JPNNI2019076088

PATIENT
  Age: 77 Year
  Sex: Female
  Weight: 41.5 kg

DRUGS (6)
  1. KIKLIN [Concomitant]
     Active Substance: BIXALOMER
     Indication: HYPERPHOSPHATAEMIA
     Dosage: 500 MILLIGRAM
     Route: 048
     Dates: start: 20180807
  2. ETELCALCETIDE [Suspect]
     Active Substance: ETELCALCETIDE
     Dosage: 3.3 MILLIGRAM, 3 TIMES/WK
     Route: 010
     Dates: start: 20180403
  3. OXAROL [Concomitant]
     Active Substance: MAXACALCITOL
     Dosage: 5 MICROGRAM, 3 TIMES/WK
     Route: 042
  4. ETELCALCETIDE [Suspect]
     Active Substance: ETELCALCETIDE
     Indication: HYPERPARATHYROIDISM SECONDARY
     Dosage: 2.5 MILLIGRAM, 3 TIMES/WK
     Route: 010
     Dates: start: 20180220, end: 20180402
  5. CALTAN [Concomitant]
     Active Substance: CALCIUM CARBONATE
     Dosage: 750 MILLIGRAM
     Route: 048
     Dates: start: 20180426
  6. FOSRENOL [Concomitant]
     Active Substance: LANTHANUM CARBONATE
     Indication: HYPERPHOSPHATAEMIA
     Dosage: 500 MILLIGRAM
     Route: 048
     Dates: start: 20180510, end: 20180814

REACTIONS (2)
  - Fall [Unknown]
  - Pubis fracture [Recovered/Resolved]

NARRATIVE: CASE EVENT DATE: 2018
